FAERS Safety Report 19378886 (Version 4)
Quarter: 2021Q3

REPORT INFORMATION
  Report Type: Report from Study
  Country: JP (occurrence: JP)
  Receive Date: 20210606
  Receipt Date: 20210719
  Transmission Date: 20211014
  Serious: Yes (Hospitalization, Other)
  Sender: FDA-Public Use
  Company Number: JP-TAKEDA-2021TJP031417

PATIENT
  Age: 25 Year
  Sex: Male
  Weight: 64 kg

DRUGS (3)
  1. VEDOLIZUMAB [Suspect]
     Active Substance: VEDOLIZUMAB
     Indication: COLITIS ULCERATIVE
     Dosage: 300 MILLIGRAM
     Route: 065
     Dates: start: 20190702, end: 20191203
  2. MESALAZINE [Concomitant]
     Active Substance: MESALAMINE
     Dosage: UNK
     Route: 065
     Dates: end: 20200511
  3. TACROLIMUS MONOHYDRATE [Concomitant]
     Active Substance: TACROLIMUS
     Dosage: UNK
     Route: 065
     Dates: end: 20191202

REACTIONS (6)
  - Proctalgia [Recovering/Resolving]
  - Pyrexia [Recovered/Resolved]
  - Vesical fistula [Recovering/Resolving]
  - Pouchitis [Recovered/Resolved]
  - Colitis ulcerative [Recovered/Resolved]
  - Colitis ulcerative [Recovered/Resolved]

NARRATIVE: CASE EVENT DATE: 20191203
